FAERS Safety Report 4788477-3 (Version None)
Quarter: 2005Q4

REPORT INFORMATION
  Report Type: 
  Country: None (occurrence: None)
  Receive Date: 20051005
  Receipt Date: 20051005
  Transmission Date: 20060501
  Serious: Yes (Hospitalization)
  Sender: FDA-Public Use
  Company Number: None

PATIENT
  Age: 38 Year
  Sex: Male

DRUGS (7)
  1. FUROSEMIDE [Suspect]
     Indication: CARDIAC FAILURE CONGESTIVE
     Dosage: 40 MG PO EVERY DAY
     Route: 048
     Dates: start: 20040927, end: 20041014
  2. FUROSEMIDE [Suspect]
     Indication: POLYURIA
     Dosage: 40 MG PO EVERY DAY
     Route: 048
     Dates: start: 20040927, end: 20041014
  3. AMIODARONE [Concomitant]
  4. ENALAPRIL [Concomitant]
  5. SYNTHROID [Concomitant]
  6. WARFARIN [Concomitant]
  7. AVELOX [Concomitant]

REACTIONS (8)
  - ASTHENIA [None]
  - BLOOD PRESSURE DECREASED [None]
  - CARDIAC FAILURE CONGESTIVE [None]
  - DEHYDRATION [None]
  - DIZZINESS [None]
  - HEART RATE DECREASED [None]
  - PALPITATIONS [None]
  - POLYURIA [None]
